FAERS Safety Report 5406113-X (Version None)
Quarter: 2007Q3

REPORT INFORMATION
  Report Type: 
  Country: None (occurrence: None)
  Receive Date: 20070806
  Receipt Date: 20070725
  Transmission Date: 20080115
  Serious: Yes (Life-Threatening)
  Sender: FDA-Public Use
  Company Number: ES-ROCHE-509059

PATIENT
  Age: 83 Year
  Sex: Female

DRUGS (9)
  1. DILUTOL [Suspect]
     Indication: ESSENTIAL HYPERTENSION
     Route: 048
     Dates: start: 20070516, end: 20070520
  2. CEFUROXIME [Suspect]
     Route: 048
     Dates: start: 20070519, end: 20070520
  3. AMERIDE [Suspect]
     Indication: DRUG USE FOR UNKNOWN INDICATION
     Dosage: STRENGTH AND FORMULATION REPORTED AS: 5/50 MG / COMP. START DATE REPORTED AS LONG TERM.
     Route: 048
  4. RISPERDAL [Suspect]
     Dosage: START DATE REPORTED AS LONG TERM.
     Route: 048
     Dates: end: 20070514
  5. 1 CONCOMITANT DRUG [Suspect]
     Dosage: DRUG NAME REPORTED AS ROTIGOTINE / NEUPRO (TRADE NAME).
     Route: 062
     Dates: start: 20070514, end: 20070520
  6. PROMETAX [Concomitant]
     Dosage: START DATE REPORTED AS LONG TERM.
     Route: 048
  7. OMEPRAZOLE [Concomitant]
     Dosage: START DATE REPORTED AS LONG TERM.
     Route: 048
  8. LOFTON [Concomitant]
     Dosage: START DATE REPORTED AS LONG TERM.
     Route: 048
  9. ADIRO [Concomitant]
     Dosage: START DATE REPORTED AS LONG TERM.
     Route: 048

REACTIONS (3)
  - ANTIDIURETIC HORMONE ABNORMALITY [None]
  - CONSTIPATION [None]
  - HYPONATRAEMIA [None]
